FAERS Safety Report 19214897 (Version 2)
Quarter: 2021Q3

REPORT INFORMATION
  Report Type: Spontaneous
  Country: FR (occurrence: FR)
  Receive Date: 20210505
  Receipt Date: 20210825
  Transmission Date: 20211014
  Serious: Yes (Other)
  Sender: FDA-Public Use
  Company Number: FR-SUN PHARMACEUTICAL INDUSTRIES LTD-2021RR-294113

PATIENT
  Age: 31 Year
  Sex: Male

DRUGS (7)
  1. TRAMADOL. [Suspect]
     Active Substance: TRAMADOL
     Indication: HEADACHE
     Dosage: 500 MILLIGRAM, 1/DAY
     Route: 048
  2. OROBUPRE [Concomitant]
     Dosage: 18 MILLIGRAM, 1/DAY
     Route: 065
  3. ABILIFY [Concomitant]
     Active Substance: ARIPIPRAZOLE
     Indication: PRODUCT USED FOR UNKNOWN INDICATION
     Dosage: UNK ()
     Route: 065
  4. ACUPAN [Concomitant]
     Active Substance: NEFOPAM HYDROCHLORIDE
     Indication: HEADACHE
     Dosage: UNK ()
     Route: 065
  5. TRAMADOL. [Suspect]
     Active Substance: TRAMADOL
     Dosage: 1200 MILLIGRAM, 1/DAY
     Route: 048
  6. OROBUPRE [Concomitant]
     Indication: PAIN
     Dosage: 14 MILLIGRAM, 1/DAY
     Route: 065
  7. METHADONE [Concomitant]
     Active Substance: METHADONE HYDROCHLORIDE
     Indication: PRODUCT USED FOR UNKNOWN INDICATION
     Dosage: UNK ()
     Route: 065

REACTIONS (5)
  - Overdose [Unknown]
  - Anxiety [Unknown]
  - Nausea [Unknown]
  - Intentional product misuse [Unknown]
  - Drug dependence [Recovering/Resolving]
